FAERS Safety Report 15465455 (Version 1)
Quarter: 2018Q4

REPORT INFORMATION
  Report Type: Spontaneous
  Country: SK (occurrence: SK)
  Receive Date: 20181004
  Receipt Date: 20181004
  Transmission Date: 20190204
  Serious: Yes (Hospitalization, Other)
  Sender: FDA-Public Use
  Company Number: SK-FRESENIUS KABI-FK201810239

PATIENT
  Age: 31 Week

DRUGS (6)
  1. GENTAMICIN. [Suspect]
     Active Substance: GENTAMICIN
     Indication: ANTIBIOTIC PROPHYLAXIS
     Route: 065
  2. BENZYLPENICILLIN [Suspect]
     Active Substance: PENICILLIN G
     Indication: ANTIBIOTIC PROPHYLAXIS
     Route: 065
  3. PHENOBARBITAL. [Suspect]
     Active Substance: PHENOBARBITAL
     Indication: PROPHYLAXIS
     Route: 065
  4. CEFUROXIME (MANUFACTURER UNKNOWN) [Suspect]
     Active Substance: CEFUROXIME
     Indication: ANTIBIOTIC PROPHYLAXIS
     Route: 065
  5. SODIUM CHLORIDE/PHOSPHOLIPIDFRACTION, PORCINE LUNG [Suspect]
     Active Substance: PORACTANT ALFA
     Indication: ANTIBIOTIC PROPHYLAXIS
     Route: 065
  6. SULTAMICILLIN [Suspect]
     Active Substance: SULTAMICILLIN
     Indication: ANTIBIOTIC PROPHYLAXIS
     Route: 065

REACTIONS (6)
  - Psychomotor skills impaired [Unknown]
  - Electroencephalogram abnormal [Unknown]
  - Epilepsy [Unknown]
  - Intraventricular haemorrhage [Unknown]
  - Intracranial pressure increased [Unknown]
  - Hypoacusis [Unknown]
